FAERS Safety Report 7123963-2 (Version None)
Quarter: 2010Q4

REPORT INFORMATION
  Report Type: 
  Country: None (occurrence: None)
  Receive Date: 20101126
  Receipt Date: 20101115
  Transmission Date: 20110411
  Serious: No
  Sender: FDA-Public Use
  Company Number: US-PFIZER INC-2010096195

PATIENT
  Sex: Male

DRUGS (4)
  1. DEPO-TESTOSTERONE [Suspect]
     Indication: ANDROGEN DEFICIENCY
     Dosage: 300 MG, EVERY 3 WEEKS
     Route: 030
     Dates: start: 20100702
  2. LEXAPRO [Concomitant]
     Indication: DEPRESSION
     Dosage: 40 MG, DAILY
     Route: 048
     Dates: start: 20090501
  3. PRILOSEC [Concomitant]
     Indication: GASTROOESOPHAGEAL REFLUX DISEASE
     Dosage: 20 MG, DAILY
     Route: 048
     Dates: start: 20080201
  4. MOBIC [Concomitant]
     Indication: PAIN
     Dosage: 7.5 MG, DAILY
     Route: 048
     Dates: start: 20100724

REACTIONS (1)
  - INJECTION SITE SWELLING [None]
